FAERS Safety Report 11856727 (Version 3)
Quarter: 2016Q2

REPORT INFORMATION
  Report Type: Report from Study
  Country: IT (occurrence: IT)
  Receive Date: 20151221
  Receipt Date: 20160620
  Transmission Date: 20160815
  Serious: Yes (Death, Hospitalization, Other)
  Sender: FDA-Public Use
  Company Number: IT-AMGEN-ITACT2015128477

PATIENT
  Age: 68 Year
  Sex: Female

DRUGS (3)
  1. SOLDESAM [Concomitant]
     Active Substance: DEXAMETHASONE
     Dosage: 20 MG, TWICE WEEKLY
     Route: 048
     Dates: start: 20151110
  2. CARFILZOMIB [Suspect]
     Active Substance: CARFILZOMIB
     Indication: PLASMA CELL MYELOMA
     Dosage: 41.58 MG, 2 TIMES/WK
     Route: 042
     Dates: start: 20151110, end: 20151118
  3. ACYCLOVIR                          /00587301/ [Concomitant]
     Active Substance: ACYCLOVIR
     Dosage: 800 MG, QD
     Route: 048
     Dates: start: 20151110

REACTIONS (2)
  - Subarachnoid haemorrhage [Fatal]
  - Plasma cell myeloma [Fatal]

NARRATIVE: CASE EVENT DATE: 20151124
